FAERS Safety Report 7191929-2 (Version None)
Quarter: 2010Q4

REPORT INFORMATION
  Report Type: 
  Country: None (occurrence: None)
  Receive Date: 20101223
  Receipt Date: 20101214
  Transmission Date: 20110411
  Serious: Yes (Other)
  Sender: FDA-Public Use
  Company Number: PHHY2010US50305

PATIENT
  Sex: Male

DRUGS (8)
  1. EXTAVIA [Suspect]
     Indication: MULTIPLE SCLEROSIS
     Dosage: 0.30 MG, QOD
     Route: 058
     Dates: start: 20100710, end: 20100725
  2. EXTAVIA [Suspect]
     Dosage: 0.25 MG
     Route: 058
  3. BACLOFEN [Concomitant]
  4. FORTEO [Concomitant]
  5. LAFLUTAMIDE [Concomitant]
  6. ALEVE [Concomitant]
  7. TRILIPIX [Concomitant]
  8. LYRICA [Concomitant]

REACTIONS (17)
  - ABDOMINAL PAIN UPPER [None]
  - ASTHENIA [None]
  - BRONCHITIS [None]
  - CHILLS [None]
  - DIARRHOEA [None]
  - DYSPNOEA [None]
  - FATIGUE [None]
  - FEELING ABNORMAL [None]
  - GAIT DISTURBANCE [None]
  - HYPERHIDROSIS [None]
  - INFLUENZA LIKE ILLNESS [None]
  - LIMB DISCOMFORT [None]
  - MALAISE [None]
  - MYALGIA [None]
  - PNEUMONIA [None]
  - PYREXIA [None]
  - QUALITY OF LIFE DECREASED [None]
